FAERS Safety Report 17900384 (Version 2)
Quarter: 2020Q2

REPORT INFORMATION
  Report Type: Spontaneous
  Country: US (occurrence: US)
  Receive Date: 20200616
  Receipt Date: 20200617
  Transmission Date: 20200714
  Serious: No
  Sender: FDA-Public Use
  Company Number: US-PFIZER INC-2020233018

PATIENT
  Age: 63 Year
  Sex: Female
  Weight: 73.48 kg

DRUGS (3)
  1. CHANTIX [Suspect]
     Active Substance: VARENICLINE TARTRATE
     Indication: SMOKING CESSATION THERAPY
     Dosage: 2 MG
     Dates: start: 20200531
  2. CHANTIX [Suspect]
     Active Substance: VARENICLINE TARTRATE
     Dosage: TWO PIECES IN MORNING, AFTERNOON AND BEDTIME
  3. CHANTIX [Suspect]
     Active Substance: VARENICLINE TARTRATE
     Dosage: 0.5 MG

REACTIONS (4)
  - Gastrooesophageal reflux disease [Unknown]
  - Taste disorder [Unknown]
  - Malaise [Unknown]
  - Wrong technique in product usage process [Unknown]

NARRATIVE: CASE EVENT DATE: 20200603
